FAERS Safety Report 10957118 (Version 4)
Quarter: 2015Q3

REPORT INFORMATION
  Report Type: Spontaneous
  Country: US (occurrence: US)
  Receive Date: 20150326
  Receipt Date: 20150710
  Transmission Date: 20151125
  Serious: Yes (Other)
  Sender: FDA-Public Use
  Company Number: US-PFIZER INC-2015102880

PATIENT
  Age: 20 Year
  Sex: Female

DRUGS (2)
  1. DEPO-PROVERA [Suspect]
     Active Substance: MEDROXYPROGESTERONE ACETATE
     Indication: CONTRACEPTION
     Dosage: 1 DF (SHOT) EVERY 3 MONTHS
     Route: 030
     Dates: start: 201310, end: 201411
  2. LITHIUM. [Concomitant]
     Active Substance: LITHIUM
     Indication: BIPOLAR DISORDER
     Dosage: 300 MG, 2X/DAY
     Dates: start: 2008

REACTIONS (9)
  - Weight increased [Not Recovered/Not Resolved]
  - Galactorrhoea [Not Recovered/Not Resolved]
  - Mood altered [Recovered/Resolved]
  - Somnolence [Recovered/Resolved]
  - Breast pain [Unknown]
  - Hunger [Recovered/Resolved]
  - Headache [Unknown]
  - Amenorrhoea [Unknown]
  - Uterine pain [Unknown]

NARRATIVE: CASE EVENT DATE: 201310
